FAERS Safety Report 6057571-1 (Version None)
Quarter: 2009Q1

REPORT INFORMATION
  Report Type: 
  Country: None (occurrence: None)
  Receive Date: 20090129
  Receipt Date: 20090126
  Transmission Date: 20090719
  Serious: Yes (Death, Life-Threatening, Other)
  Sender: FDA-Public Use
  Company Number: DE-WYE-H00562207

PATIENT
  Sex: Male

DRUGS (6)
  1. RAPAMUNE [Suspect]
     Indication: PROPHYLAXIS AGAINST TRANSPLANT REJECTION
     Dosage: ^2 DAILY^ (UNITS NOT SPECIFIED)
     Route: 048
     Dates: start: 20070510
  2. METIMAZOL [Concomitant]
  3. URSO FALK [Concomitant]
  4. PANTOPRAZOLE [Concomitant]
  5. TACROLIMUS [Suspect]
     Indication: PROPHYLAXIS AGAINST TRANSPLANT REJECTION
     Dosage: UNSPECIFIED
  6. MYCOPHENOLATE MOFETIL [Suspect]
     Indication: PROPHYLAXIS AGAINST TRANSPLANT REJECTION
     Dosage: UNSPECIFIED
     Dates: end: 20070510

REACTIONS (1)
  - HEPATIC NEOPLASM MALIGNANT RECURRENT [None]
